FAERS Safety Report 17667269 (Version 1)
Quarter: 2020Q2

REPORT INFORMATION
  Report Type: Spontaneous
  Country: BR (occurrence: BR)
  Receive Date: 20200414
  Receipt Date: 20200414
  Transmission Date: 20200713
  Serious: Yes (Other)
  Sender: FDA-Public Use
  Company Number: BR-JNJFOC-20200408653

PATIENT
  Age: 83 Year
  Sex: Female

DRUGS (4)
  1. RIVAROXABAN [Suspect]
     Active Substance: RIVAROXABAN
     Indication: CARDIAC DISORDER
     Dosage: 20 MG, QD
     Route: 048
     Dates: start: 2019
  2. ANCORON [Concomitant]
     Active Substance: AMIODARONE HYDROCHLORIDE
     Indication: CARDIAC DISORDER
  3. FUROSEMIDE. [Concomitant]
     Active Substance: FUROSEMIDE
     Indication: DIURETIC THERAPY
  4. INFLUENZA VACCINE [Interacting]
     Active Substance: INFLUENZA VIRUS VACCINE
     Dates: start: 20200330

REACTIONS (18)
  - Skin cancer [Not Recovered/Not Resolved]
  - Peripheral swelling [Unknown]
  - Skin wound [Not Recovered/Not Resolved]
  - Retching [Not Recovered/Not Resolved]
  - Weight decreased [Unknown]
  - Weight increased [Unknown]
  - Vomiting [Unknown]
  - Pollakiuria [Recovered/Resolved]
  - Skin discolouration [Unknown]
  - Asthenia [Unknown]
  - Retching [Unknown]
  - Dizziness [Not Recovered/Not Resolved]
  - Intentional dose omission [Unknown]
  - Drug interaction [Unknown]
  - Varicose vein [Unknown]
  - Wound complication [Not Recovered/Not Resolved]
  - Migraine [Not Recovered/Not Resolved]
  - Mobility decreased [Unknown]

NARRATIVE: CASE EVENT DATE: 2019
